FAERS Safety Report 4643763-2 (Version None)
Quarter: 2005Q2

REPORT INFORMATION
  Report Type: 
  Country: None (occurrence: None)
  Receive Date: 20050422
  Receipt Date: 20050422
  Transmission Date: 20051028
  Serious: Yes (Other)
  Sender: FDA-Public Use
  Company Number: None

PATIENT
  Age: 63 Year
  Sex: Male
  Weight: 200 kg

DRUGS (16)
  1. OXYBUTYNIN CHLORIDE [Suspect]
  2. MELOXICAM [Concomitant]
  3. TERAZOSIN HCL [Concomitant]
  4. SUCRALFATE [Concomitant]
  5. HYDROCODONE / ACETAMINOPHEN [Concomitant]
  6. OLANZAPINE [Concomitant]
  7. METFORMIN HCL [Concomitant]
  8. LOVASTATIN [Concomitant]
  9. POTASSIUM CHLORIDE [Concomitant]
  10. ROSIGLITAZONE MALEATE [Concomitant]
  11. SULFAMETHOXAZOLE + TRIMETHOPRIM [Concomitant]
  12. GLYBURIDE [Concomitant]
  13. ENALAPRIL MALEATE [Concomitant]
  14. METOPROLOL TARTRATE [Concomitant]
  15. FINASTERIDE [Concomitant]
  16. FUROSEMIDE [Concomitant]

REACTIONS (1)
  - VISION BLURRED [None]
